FAERS Safety Report 9303887 (Version 1)
Quarter: 2013Q2

REPORT INFORMATION
  Report Type: Spontaneous
  Country: US (occurrence: US)
  Receive Date: 20130522
  Receipt Date: 20130522
  Transmission Date: 20140414
  Serious: Yes (Other)
  Sender: FDA-Public Use
  Company Number: US-009507513-1305USA012742

PATIENT
  Sex: Male

DRUGS (2)
  1. REBETOL [Suspect]
     Indication: HEPATITIS C
     Dosage: UNK
     Dates: start: 20090102, end: 20091002
  2. PEGASYS [Suspect]
     Indication: HEPATITIS C
     Dosage: UNK
     Dates: start: 20090102, end: 20091002

REACTIONS (5)
  - Alcoholism [Unknown]
  - Leukopenia [Unknown]
  - White blood cell count decreased [Unknown]
  - Drug ineffective [Unknown]
  - Therapeutic response decreased [Unknown]
